FAERS Safety Report 12964862 (Version 1)
Quarter: 2016Q4

REPORT INFORMATION
  Report Type: Spontaneous
  Country: PL (occurrence: PL)
  Receive Date: 20161122
  Receipt Date: 20161122
  Transmission Date: 20170207
  Serious: Yes (Other)
  Sender: FDA-Public Use
  Company Number: PL-MYLANLABS-2016M1048839

PATIENT
  Age: 67 Year
  Sex: Male

DRUGS (3)
  1. OLANZAPINE. [Suspect]
     Active Substance: OLANZAPINE
     Indication: BIPOLAR DISORDER
     Dosage: 10 MG, QD
     Route: 065
  2. QUETIAPINE. [Suspect]
     Active Substance: QUETIAPINE
     Indication: PRODUCT USED FOR UNKNOWN INDICATION
     Dosage: UNK
     Route: 065
  3. VALPROIC ACID. [Interacting]
     Active Substance: VALPROIC ACID
     Indication: BIPOLAR DISORDER
     Dosage: 1000 MG, QD
     Route: 065

REACTIONS (7)
  - Drug interaction [Unknown]
  - Alanine aminotransferase increased [Unknown]
  - Aspartate aminotransferase increased [Unknown]
  - Drug-induced liver injury [Unknown]
  - Pruritus [Unknown]
  - Yellow skin [Unknown]
  - Blood bilirubin increased [Unknown]
